FAERS Safety Report 22820757 (Version 2)
Quarter: 2023Q4

REPORT INFORMATION
  Report Type: Spontaneous
  Country: CN (occurrence: CN)
  Receive Date: 20230814
  Receipt Date: 20231006
  Transmission Date: 20240109
  Serious: Yes (Life-Threatening)
  Sender: FDA-Public Use
  Company Number: CN-BAYER-2023A113953

PATIENT
  Age: 37 Year
  Sex: Female

DRUGS (1)
  1. ULTRAVIST [Suspect]
     Active Substance: IOPROMIDE
     Indication: Computerised tomogram
     Dosage: 80 ML, ONCE, HIGH PRESSURE
     Route: 042
     Dates: start: 20230809, end: 20230809

REACTIONS (7)
  - Anaphylactic shock [Recovering/Resolving]
  - Rash pruritic [Recovering/Resolving]
  - Chest pain [Recovering/Resolving]
  - Erythema [Recovering/Resolving]
  - Eyelid oedema [Recovering/Resolving]
  - Cough [Recovering/Resolving]
  - Dyspnoea [Recovering/Resolving]

NARRATIVE: CASE EVENT DATE: 20230809
